FAERS Safety Report 21516274 (Version 1)
Quarter: 2022Q4

REPORT INFORMATION
  Report Type: Spontaneous
  Country: JO (occurrence: JO)
  Receive Date: 20221027
  Receipt Date: 20221027
  Transmission Date: 20230113
  Serious: No
  Sender: FDA-Public Use
  Company Number: JO-JAZZ-2022-JO-013499

PATIENT

DRUGS (1)
  1. DEFIBROTIDE SODIUM [Suspect]
     Active Substance: DEFIBROTIDE SODIUM
     Indication: Prophylaxis
     Dosage: 6.25 MICROGRAM PER KILOGRAM EVERY 6 HOUR
     Route: 042

REACTIONS (1)
  - Off label use [Unknown]
